FAERS Safety Report 6993510-4 (Version None)
Quarter: 2010Q3

REPORT INFORMATION
  Report Type: 
  Country: None (occurrence: None)
  Receive Date: 20100917
  Receipt Date: 20100603
  Transmission Date: 20110219
  Serious: No
  Sender: FDA-Public Use
  Company Number: US-ASTRAZENECA-2010SE25717

PATIENT
  Age: 54 Year
  Sex: Female

DRUGS (23)
  1. SEROQUEL XR [Suspect]
     Indication: MAJOR DEPRESSION
     Route: 048
     Dates: end: 20100501
  2. SEROQUEL XR [Suspect]
     Indication: INSOMNIA
     Route: 048
     Dates: end: 20100501
  3. SEROQUEL XR [Suspect]
     Indication: HEADACHE
     Route: 048
     Dates: end: 20100501
  4. SEROQUEL XR [Suspect]
     Route: 048
     Dates: start: 20100601
  5. SEROQUEL XR [Suspect]
     Route: 048
     Dates: start: 20100601
  6. SEROQUEL XR [Suspect]
     Route: 048
     Dates: start: 20100601
  7. SEROQUEL XR [Suspect]
     Route: 048
     Dates: start: 20100601
  8. SEROQUEL XR [Suspect]
     Route: 048
     Dates: start: 20100601
  9. SEROQUEL XR [Suspect]
     Route: 048
     Dates: start: 20100601
  10. CLONOPIN [Concomitant]
  11. LEVOTHROID [Concomitant]
  12. NEURONTIN [Concomitant]
  13. HYDROCHLOROT [Concomitant]
  14. TRILIPIX [Concomitant]
  15. PRISTIQ [Concomitant]
  16. SIMVASTATIN [Concomitant]
  17. TRAMADOL [Concomitant]
  18. BACLOFEN [Concomitant]
  19. DETROL [Concomitant]
  20. LAMISIL [Concomitant]
  21. AMLODIPINE [Concomitant]
  22. PROZAC [Concomitant]
  23. STOOL SOFTNER [Concomitant]

REACTIONS (10)
  - COLD SWEAT [None]
  - DRUG DOSE OMISSION [None]
  - HEADACHE [None]
  - MENTAL IMPAIRMENT [None]
  - MUSCLE SPASMS [None]
  - NAUSEA [None]
  - SCRATCH [None]
  - SWEAT GLAND DISORDER [None]
  - TREMOR [None]
  - WITHDRAWAL SYNDROME [None]
